FAERS Safety Report 8084438-X (Version None)
Quarter: 2012Q1

REPORT INFORMATION
  Report Type: 
  Country: None (occurrence: None)
  Receive Date: 20120128
  Receipt Date: 20110322
  Transmission Date: 20120608
  Serious: No
  Sender: FDA-Public Use
  Company Number: US-ABBOTT-11P-163-0714025-00

PATIENT
  Sex: Female
  Weight: 68.1 kg

DRUGS (6)
  1. XIFAXIN [Concomitant]
     Indication: CROHN'S DISEASE
  2. HUMIRA [Suspect]
     Indication: CROHN'S DISEASE
     Dates: start: 20110311, end: 20110321
  3. PROBIOTIC [Concomitant]
     Indication: FUNCTIONAL GASTROINTESTINAL DISORDER
  4. TRAMADOL HCL [Concomitant]
     Indication: PAIN
     Dosage: AS NEEDED
  5. IMODIUM [Concomitant]
     Indication: CROHN'S DISEASE
  6. VITAMIN D [Concomitant]
     Indication: VITAMIN SUPPLEMENTATION

REACTIONS (2)
  - RASH MACULAR [None]
  - RASH [None]
